FAERS Safety Report 8017650-6 (Version None)
Quarter: 2012Q1

REPORT INFORMATION
  Report Type: 
  Country: None (occurrence: None)
  Receive Date: 20120103
  Receipt Date: 20111222
  Transmission Date: 20120608
  Serious: No
  Sender: FDA-Public Use
  Company Number: US-B.I. PHARMACEUTICALS,INC./RIDGEFIELD-2011-BP-24618BP

PATIENT
  Age: 69 Year
  Sex: Female
  Weight: 61.23 kg

DRUGS (7)
  1. PRADAXA [Suspect]
     Dosage: 300 MG
     Route: 048
  2. LOVAZA [Concomitant]
  3. PASICLINE [Concomitant]
  4. MICARDIS [Concomitant]
  5. ALENDRONATE SODIUM [Concomitant]
  6. MAVIK [Concomitant]
  7. AMLODIPINE [Concomitant]

REACTIONS (3)
  - OESOPHAGEAL ULCER [None]
  - ODYNOPHAGIA [None]
  - DYSPHAGIA [None]
